FAERS Safety Report 12227131 (Version 2)
Quarter: 2016Q2

REPORT INFORMATION
  Report Type: Report from Study
  Country: US (occurrence: US)
  Receive Date: 20160331
  Receipt Date: 20160406
  Transmission Date: 20160815
  Serious: Yes (Death, Hospitalization)
  Sender: FDA-Public Use
  Company Number: US-ACTELION-A-NJ2016-133553

PATIENT
  Age: 65 Year
  Sex: Female

DRUGS (2)
  1. VELETRI [Suspect]
     Active Substance: EPOPROSTENOL
     Indication: PULMONARY ARTERIAL HYPERTENSION
     Dosage: 74 NG/KG, PER MIN
     Route: 042
     Dates: start: 20150706, end: 20160328
  2. REVATIO [Concomitant]
     Active Substance: SILDENAFIL CITRATE

REACTIONS (6)
  - Renal failure [Unknown]
  - Hyperkalaemia [Unknown]
  - Hypoacusis [Unknown]
  - Feeling abnormal [Unknown]
  - Death [Fatal]
  - Hyponatraemia [Unknown]
